FAERS Safety Report 8482119-1 (Version None)
Quarter: 2012Q3

REPORT INFORMATION
  Report Type: 
  Country: None (occurrence: None)
  Receive Date: 20120702
  Receipt Date: 20120620
  Transmission Date: 20120928
  Serious: Yes (Other)
  Sender: FDA-Public Use
  Company Number: JP-VERTEX PHARMACEUTICALS INC.-AE-2012-008903

PATIENT
  Age: 67 Year
  Sex: Male

DRUGS (3)
  1. TELAVIC (TELAPREVIR) [Suspect]
     Indication: HEPATITIS C
     Route: 048
     Dates: start: 20120509, end: 20120522
  2. PEGINTERFERON ALFA-2B [Concomitant]
     Route: 058
     Dates: start: 20120509, end: 20120522
  3. RIBAVIRIN [Concomitant]
     Route: 048
     Dates: start: 20120509, end: 20120522

REACTIONS (3)
  - UPPER RESPIRATORY TRACT INFLAMMATION [None]
  - NAUSEA [None]
  - DECREASED APPETITE [None]
